FAERS Safety Report 23762611 (Version 5)
Quarter: 2025Q1

REPORT INFORMATION
  Report Type: Report from Study
  Country: CA (occurrence: CA)
  Receive Date: 20240419
  Receipt Date: 20250212
  Transmission Date: 20250409
  Serious: Yes (Hospitalization, Other)
  Sender: TAKEDA
  Company Number: CA-TAKEDA-2024TUS035738

PATIENT
  Sex: Male

DRUGS (5)
  1. VEDOLIZUMAB [Suspect]
     Active Substance: VEDOLIZUMAB
     Indication: Colitis ulcerative
  2. VEDOLIZUMAB [Suspect]
     Active Substance: VEDOLIZUMAB
  3. STELARA [Concomitant]
     Active Substance: USTEKINUMAB
  4. MESALAMINE [Concomitant]
     Active Substance: MESALAMINE
  5. BUDESONIDE [Concomitant]
     Active Substance: BUDESONIDE

REACTIONS (4)
  - Appendicitis perforated [Unknown]
  - Post procedural complication [Not Recovered/Not Resolved]
  - Intestinal obstruction [Not Recovered/Not Resolved]
  - Frequent bowel movements [Unknown]
